FAERS Safety Report 9568742 (Version 2)
Quarter: 2013Q3

REPORT INFORMATION
  Report Type: Spontaneous
  Country: US (occurrence: US)
  Receive Date: 20130930
  Receipt Date: 20130930
  Transmission Date: 20140515
  Serious: No
  Sender: FDA-Public Use
  Company Number: US-AMGEN-USASP2012068541

PATIENT
  Age: 53 Year
  Sex: Female

DRUGS (5)
  1. ENBREL [Suspect]
     Indication: PSORIATIC ARTHROPATHY
     Dosage: 50 MG, QWK
     Route: 058
     Dates: start: 200909
  2. DICLOFENAC [Concomitant]
     Dosage: 100MG ER
  3. LEVOTHYROXINE [Concomitant]
     Dosage: 88 MCG
  4. PROTONIX [Concomitant]
     Dosage: 20 MG
  5. CELEXA                             /01400501/ [Concomitant]
     Dosage: 10 MG

REACTIONS (6)
  - Injection site reaction [Unknown]
  - Injection site erythema [Not Recovered/Not Resolved]
  - Injection site swelling [Unknown]
  - Urticaria [Recovered/Resolved]
  - Injection site inflammation [Not Recovered/Not Resolved]
  - Injection site warmth [Not Recovered/Not Resolved]
